FAERS Safety Report 9637636 (Version 1)
Quarter: 2013Q4

REPORT INFORMATION
  Report Type: Spontaneous
  Country: IN (occurrence: IN)
  Receive Date: 20131022
  Receipt Date: 20131022
  Transmission Date: 20140711
  Serious: Yes (Other)
  Sender: FDA-Public Use
  Company Number: IN-BAXTER-2013BAX040354

PATIENT
  Age: 4 Month
  Sex: Male

DRUGS (5)
  1. HUMAN IMMUNOGLOBULIN IVIG, TRIPLE VIRALLY REDUCED (TVR) SOLUTION FOR I [Suspect]
     Indication: AUTOIMMUNE HAEMOLYTIC ANAEMIA
     Dosage: 2 G/KG/TOTAL
     Route: 042
  2. HUMAN IMMUNOGLOBULIN IVIG, TRIPLE VIRALLY REDUCED (TVR) SOLUTION FOR I [Suspect]
     Indication: OFF LABEL USE
     Dosage: 1 G/KG
     Route: 042
  3. METHYLPREDNISOLONE [Concomitant]
     Indication: AUTOIMMUNE HAEMOLYTIC ANAEMIA
     Route: 065
  4. PREDNISOLONE [Concomitant]
     Indication: AUTOIMMUNE HAEMOLYTIC ANAEMIA
     Route: 048
  5. PREDNISOLONE [Concomitant]
     Route: 048

REACTIONS (1)
  - Drug ineffective [Recovered/Resolved]
